FAERS Safety Report 4443283-4 (Version None)
Quarter: 2004Q3

REPORT INFORMATION
  Report Type: 
  Country: None (occurrence: None)
  Receive Date: 20040728
  Receipt Date: 20040520
  Transmission Date: 20050211
  Serious: No
  Sender: FDA-Public Use
  Company Number: USA040568162

PATIENT
  Age: 56 Year
  Sex: Female
  Weight: 80 kg

DRUGS (18)
  1. STRATTERA [Suspect]
     Indication: ATTENTION DEFICIT/HYPERACTIVITY DISORDER
     Dosage: 40 MG DAY
  2. ZOLOFT [Concomitant]
  3. CLONAZEPAM [Concomitant]
  4. PROVIGIL [Concomitant]
  5. VIOXX [Concomitant]
  6. PROTONIX [Concomitant]
  7. PRILOSEC [Concomitant]
  8. BUSPAR [Concomitant]
  9. XENICAL [Concomitant]
  10. ALLEGRA (FEXOFENADINE HYDROCHRLORIDE) [Concomitant]
  11. PROMETRIUM [Concomitant]
  12. ESTRATEST H.S. [Concomitant]
  13. ACTONEL [Concomitant]
  14. ASMACORT (TRIAMCINOLONE ACETONIDE) [Concomitant]
  15. FLONASE [Concomitant]
  16. CENTRUM [Concomitant]
  17. CALCIUM [Concomitant]
  18. LIBRAX [Concomitant]

REACTIONS (4)
  - ABDOMINAL DISTENSION [None]
  - CONSTIPATION [None]
  - THYROID FUNCTION TEST ABNORMAL [None]
  - WEIGHT INCREASED [None]
